FAERS Safety Report 7564148-5 (Version None)
Quarter: 2011Q2

REPORT INFORMATION
  Report Type: 
  Country: None (occurrence: None)
  Receive Date: 20110622
  Receipt Date: 20110620
  Transmission Date: 20111010
  Serious: Yes (Other)
  Sender: FDA-Public Use
  Company Number: GB-ABBOTT-11P-167-0733865-00

PATIENT
  Sex: Male
  Weight: 180 kg

DRUGS (4)
  1. HUMIRA [Suspect]
     Indication: RHEUMATOID ARTHRITIS
     Route: 058
     Dates: start: 20070615, end: 20090930
  2. HUMIRA [Suspect]
     Route: 058
     Dates: start: 20100331
  3. METHOTREXATE [Concomitant]
     Indication: PRODUCT USED FOR UNKNOWN INDICATION
     Dates: start: 20020215, end: 20071211
  4. AZULFIDINE [Concomitant]
     Indication: PRODUCT USED FOR UNKNOWN INDICATION
     Dates: start: 20070615

REACTIONS (2)
  - RECTAL HAEMORRHAGE [None]
  - IRON DEFICIENCY ANAEMIA [None]
